FAERS Safety Report 10527441 (Version 1)
Quarter: 2014Q4

REPORT INFORMATION
  Report Type: Spontaneous
  Country: PR (occurrence: None)
  Receive Date: 20141016
  Receipt Date: 20141016
  Transmission Date: 20150528
  Serious: No
  Sender: FDA-Public Use
  Company Number: None

PATIENT
  Age: 80 Year
  Sex: Female
  Weight: 76.66 kg

DRUGS (1)
  1. AZACTAM [Suspect]
     Active Substance: AZTREONAM
     Indication: SKIN ULCER
     Route: 042
     Dates: start: 20140805, end: 20140806

REACTIONS (1)
  - Stomatitis [None]

NARRATIVE: CASE EVENT DATE: 20140805
